FAERS Safety Report 9740819 (Version 1)
Quarter: 2013Q4

REPORT INFORMATION
  Report Type: Spontaneous
  Country: US (occurrence: US)
  Receive Date: 20131209
  Receipt Date: 20131209
  Transmission Date: 20140711
  Serious: No
  Sender: FDA-Public Use
  Company Number: US-BIOGENIDEC-2013BI099310

PATIENT
  Age: 63 Year
  Sex: Female

DRUGS (10)
  1. TECFIDERA [Suspect]
     Indication: MULTIPLE SCLEROSIS
     Route: 048
     Dates: start: 20130924
  2. AMINOPHYLLINE [Concomitant]
  3. BACLOFEN [Concomitant]
  4. CARBAMAZEPINE ER [Concomitant]
  5. EXCEDRIN EXTRA STRENGTH [Concomitant]
  6. GABAPENTIN [Concomitant]
  7. LYRICA [Concomitant]
  8. NAPROXEN [Concomitant]
  9. PEPTO- BISMOL [Concomitant]
  10. TRAZODONE HCL [Concomitant]

REACTIONS (2)
  - Abdominal pain [Unknown]
  - Diarrhoea [Unknown]
